FAERS Safety Report 21686703 (Version 1)
Quarter: 2022Q4

REPORT INFORMATION
  Report Type: Other
  Country: CA (occurrence: CA)
  Receive Date: 20221206
  Receipt Date: 20221206
  Transmission Date: 20230113
  Serious: Yes (Hospitalization, Other)
  Sender: FDA-Public Use
  Company Number: CA-APOTEX-2022AP016251

PATIENT
  Age: 55 Year
  Sex: Female

DRUGS (2)
  1. RANITIDINE [Suspect]
     Active Substance: RANITIDINE
     Indication: Gastrooesophageal reflux disease
     Dosage: UNK
     Route: 065
  2. RANITIDINE HYDROCHLORIDE [Suspect]
     Active Substance: RANITIDINE HYDROCHLORIDE
     Indication: Gastrooesophageal reflux disease
     Dosage: UNK
     Route: 065

REACTIONS (7)
  - Acute abdomen [Not Recovered/Not Resolved]
  - Cancer surgery [Not Recovered/Not Resolved]
  - Colon cancer [Not Recovered/Not Resolved]
  - Hepatic lesion [Not Recovered/Not Resolved]
  - Ileostomy [Not Recovered/Not Resolved]
  - Metastases to abdominal wall [Not Recovered/Not Resolved]
  - Neoplasm [Not Recovered/Not Resolved]
